FAERS Safety Report 7387099-8 (Version None)
Quarter: 2011Q1

REPORT INFORMATION
  Report Type: 
  Country: None (occurrence: None)
  Receive Date: 20110331
  Receipt Date: 20110324
  Transmission Date: 20110831
  Serious: Yes (Hospitalization)
  Sender: FDA-Public Use
  Company Number: A0740766A

PATIENT
  Age: 61 Year
  Sex: Male
  Weight: 92.1 kg

DRUGS (8)
  1. LIPITOR [Concomitant]
  2. ALTACE [Concomitant]
  3. COREG [Concomitant]
  4. AVANDIA [Suspect]
     Indication: TYPE 2 DIABETES MELLITUS
     Dosage: 4MG TWICE PER DAY
     Route: 048
     Dates: start: 20000424, end: 20060701
  5. AVANDAMET [Suspect]
     Indication: DIABETES MELLITUS
     Route: 048
     Dates: start: 20031101, end: 20070601
  6. AMARYL [Concomitant]
  7. PLAVIX [Concomitant]
  8. METFORMIN HCL [Concomitant]

REACTIONS (12)
  - FATIGUE [None]
  - PAIN [None]
  - EMOTIONAL DISORDER [None]
  - ASTHENIA [None]
  - ECONOMIC PROBLEM [None]
  - MYOCARDIAL INFARCTION [None]
  - CARDIAC DISORDER [None]
  - CARDIOMYOPATHY [None]
  - HYPERLIPIDAEMIA [None]
  - ARTERIOSCLEROSIS [None]
  - ANGINA PECTORIS [None]
  - CORONARY ARTERY DISEASE [None]
